FAERS Safety Report 18510205 (Version 2)
Quarter: 2020Q4

REPORT INFORMATION
  Report Type: Spontaneous
  Country: US (occurrence: US)
  Receive Date: 20201117
  Receipt Date: 20201202
  Transmission Date: 20210114
  Serious: No
  Sender: FDA-Public Use
  Company Number: US-009507513-2011USA003792

PATIENT
  Age: 14 Year
  Sex: Female
  Weight: 55.33 kg

DRUGS (1)
  1. NEXPLANON [Suspect]
     Active Substance: ETONOGESTREL
     Dosage: 1 IMPLANT IN LEFT ARM, EVERY THREE YEARS
     Dates: start: 20201103, end: 20201103

REACTIONS (2)
  - Complication of device insertion [Unknown]
  - Device kink [Unknown]

NARRATIVE: CASE EVENT DATE: 20201103
